FAERS Safety Report 24382302 (Version 2)
Quarter: 2025Q1

REPORT INFORMATION
  Report Type: Report from Study
  Country: CA (occurrence: CA)
  Receive Date: 20241001
  Receipt Date: 20250116
  Transmission Date: 20250409
  Serious: Yes (Other)
  Sender: TAKEDA
  Company Number: CA-TAKEDA-2024TUS090681

PATIENT
  Age: 61 Year
  Sex: Female

DRUGS (5)
  1. VEDOLIZUMAB [Suspect]
     Active Substance: VEDOLIZUMAB
     Indication: Colitis ulcerative
  2. VEDOLIZUMAB [Suspect]
     Active Substance: VEDOLIZUMAB
  3. VEDOLIZUMAB [Suspect]
     Active Substance: VEDOLIZUMAB
  4. MESALAMINE [Concomitant]
     Active Substance: MESALAMINE
  5. SYNTHROID [Concomitant]
     Active Substance: LEVOTHYROXINE SODIUM

REACTIONS (13)
  - Haematochezia [Unknown]
  - Uterine polyp [Unknown]
  - Limb injury [Unknown]
  - Uterine cyst [Unknown]
  - Dry skin [Unknown]
  - Skin fissures [Unknown]
  - Skin irritation [Unknown]
  - Peripheral swelling [Unknown]
  - Wound infection [Unknown]
  - Defaecation urgency [Unknown]
  - Faeces soft [Unknown]
  - Gastrointestinal motility disorder [Unknown]
  - Dyspepsia [Not Recovered/Not Resolved]

NARRATIVE: CASE EVENT DATE: 20240916
